FAERS Safety Report 16759196 (Version 1)
Quarter: 2019Q3

REPORT INFORMATION
  Report Type: Spontaneous
  Country: SA (occurrence: SA)
  Receive Date: 20190830
  Receipt Date: 20190830
  Transmission Date: 20191005
  Serious: Yes (Other)
  Sender: FDA-Public Use
  Company Number: SA-MICRO LABS LIMITED-ML2019-02092

PATIENT
  Age: 42 Year
  Sex: Female
  Weight: 82 kg

DRUGS (9)
  1. MIDAZOLAM [Concomitant]
     Active Substance: MIDAZOLAM HYDROCHLORIDE
     Indication: INDUCTION OF ANAESTHESIA
     Dosage: 3 MG
  2. HEPARIN [Concomitant]
     Active Substance: HEPARIN SODIUM
     Dosage: 35000 IU
  3. FENTANYL. [Concomitant]
     Active Substance: FENTANYL
     Indication: INDUCTION OF ANAESTHESIA
     Dosage: 250 UG DURING INDUCTION AND ANOTHER DOSE OF 250 UG AT INTUBATION.
  4. PROTAMINE [Concomitant]
     Active Substance: PROTAMINE
  5. TRANEXAMIC ACID. [Suspect]
     Active Substance: TRANEXAMIC ACID
     Indication: PROCOAGULANT THERAPY
     Dosage: 800 MG BOLUS. ANESTHESIA WAS MAINTAINED WITH 160 MG/H AS ANTIFIBRINOLYTIC
  6. ROCURONIUM [Concomitant]
     Active Substance: ROCURONIUM BROMIDE
     Indication: MUSCLE RELAXANT THERAPY
     Dosage: 80 MG
  7. PROPOFOL. [Concomitant]
     Active Substance: PROPOFOL
     Indication: ANAESTHESIA
     Dosage: 25-30 UG/KG/H
  8. WARFARIN [Suspect]
     Active Substance: WARFARIN
     Indication: ATRIAL FIBRILLATION
     Dosage: ON WARFARIN FOR THE LAST 8 YEARS
  9. ETOMIDATE. [Concomitant]
     Active Substance: ETOMIDATE
     Indication: INDUCTION OF ANAESTHESIA
     Dosage: 6 MG

REACTIONS (2)
  - Arterial thrombosis [Not Recovered/Not Resolved]
  - Intracardiac thrombus [Not Recovered/Not Resolved]
